FAERS Safety Report 6080077-0 (Version None)
Quarter: 2009Q1

REPORT INFORMATION
  Report Type: 
  Country: None (occurrence: None)
  Receive Date: 20090217
  Receipt Date: 20090205
  Transmission Date: 20090719
  Serious: Yes (Hospitalization, Other)
  Sender: FDA-Public Use
  Company Number: US-PFIZER INC-2008159641

PATIENT
  Age: 65 Year
  Sex: Male
  Weight: 63.492 kg

DRUGS (3)
  1. LYRICA [Suspect]
     Indication: HERPES ZOSTER
     Dosage: UNK
     Dates: start: 20080101
  2. ALL OTHER THERAPEUTIC PRODUCTS [Suspect]
     Indication: HYPOTENSION
     Dates: start: 20090201
  3. ALL OTHER THERAPEUTIC PRODUCTS [Concomitant]
     Dosage: UNK

REACTIONS (7)
  - ADVERSE REACTION [None]
  - CARDIAC DISORDER [None]
  - CONFUSIONAL STATE [None]
  - HYPOTENSION [None]
  - LOSS OF CONSCIOUSNESS [None]
  - LUNG NEOPLASM MALIGNANT [None]
  - PAIN [None]
